FAERS Safety Report 21137358 (Version 1)
Quarter: 2022Q3

REPORT INFORMATION
  Report Type: Spontaneous
  Country: US (occurrence: US)
  Receive Date: 20220727
  Receipt Date: 20220727
  Transmission Date: 20221026
  Serious: Yes (Death)
  Sender: FDA-Public Use
  Company Number: US-VELOXIS PHARMACEUTCALS-2022VELUS-000067

PATIENT
  Sex: Female

DRUGS (1)
  1. ENVARSUS XR [Suspect]
     Active Substance: TACROLIMUS
     Indication: Product used for unknown indication
     Dosage: UNK

REACTIONS (1)
  - COVID-19 [Fatal]
